FAERS Safety Report 15774311 (Version 1)
Quarter: 2018Q4

REPORT INFORMATION
  Report Type: Spontaneous
  Country: US (occurrence: US)
  Receive Date: 20181229
  Receipt Date: 20181229
  Transmission Date: 20190205
  Serious: Yes (Hospitalization, Other)
  Sender: FDA-Public Use
  Company Number: US-MICRO LABS LIMITED-ML2018-02846

PATIENT
  Age: 79 Year
  Sex: Male
  Weight: 152 kg

DRUGS (5)
  1. DIPHENHYDRAMINE HYDROCHLORIDE. [Suspect]
     Active Substance: DIPHENHYDRAMINE HYDROCHLORIDE
     Indication: ANGIOEDEMA
     Route: 042
  2. METHYLPREDNISOLONE. [Suspect]
     Active Substance: METHYLPREDNISOLONE
     Indication: ANGIOEDEMA
     Route: 042
  3. LISINOPRIL. [Concomitant]
     Active Substance: LISINOPRIL
     Indication: HYPERTENSION
     Dosage: TAKING MORETHAN A DECADE
  4. EPINEPHRINE. [Suspect]
     Active Substance: EPINEPHRINE
     Indication: ANGIOEDEMA
     Route: 030
  5. OPIATES [Concomitant]
     Active Substance: UNSPECIFIED INGREDIENT
     Indication: PAIN

REACTIONS (1)
  - Therapy non-responder [Unknown]
